FAERS Safety Report 6108395-8 (Version None)
Quarter: 2009Q1

REPORT INFORMATION
  Report Type: 
  Country: None (occurrence: None)
  Receive Date: 20090309
  Receipt Date: 20090223
  Transmission Date: 20090719
  Serious: Yes (Other)
  Sender: FDA-Public Use
  Company Number: PHHY2008MX01885

PATIENT
  Age: 62 Year
  Sex: Female

DRUGS (6)
  1. DIOVAN HCT [Suspect]
     Indication: HYPERTENSION
     Dosage: 1 TABLET 160/12.5 MG PER DAY
     Route: 048
     Dates: start: 20020101, end: 20080120
  2. DIOVAN HCT [Suspect]
     Dosage: 1 TABLET (80/12.5 MG)
     Route: 048
     Dates: start: 20080220
  3. METFORMIN [Concomitant]
     Indication: DIABETES MELLITUS
     Route: 048
  4. HORMONES [Concomitant]
  5. LIVIAL [Concomitant]
     Dosage: UNK
     Dates: start: 19960101, end: 20080120
  6. NIFEDIPINE [Concomitant]
     Dosage: UNK
     Dates: end: 20080220

REACTIONS (10)
  - BLOOD GLUCOSE INCREASED [None]
  - BLOOD PRESSURE DECREASED [None]
  - CARDIOMEGALY [None]
  - DEPRESSION [None]
  - DISCOMFORT [None]
  - DRUG RESISTANCE [None]
  - HEADACHE [None]
  - HYPERTENSION [None]
  - THROMBOSIS [None]
  - UMBILICAL HERNIA REPAIR [None]
